FAERS Safety Report 23441954 (Version 1)
Quarter: 2024Q1

REPORT INFORMATION
  Report Type: Spontaneous
  Country: US (occurrence: US)
  Receive Date: 20240125
  Receipt Date: 20240125
  Transmission Date: 20240410
  Serious: No
  Sender: FDA-Public Use
  Company Number: US-BRISTOL-MYERS SQUIBB COMPANY-2024-013465

PATIENT
  Age: 68 Year
  Sex: Male
  Weight: 107.5 kg

DRUGS (1)
  1. ELIQUIS [Suspect]
     Active Substance: APIXABAN
     Indication: Deep vein thrombosis
     Dosage: 2W, 1W OFF
     Dates: start: 20240115

REACTIONS (2)
  - Night sweats [Unknown]
  - Chills [Unknown]
